FAERS Safety Report 4360764-2 (Version None)
Quarter: 2004Q2

REPORT INFORMATION
  Report Type: 
  Country: None (occurrence: None)
  Receive Date: 20040519
  Receipt Date: 20040510
  Transmission Date: 20050107
  Serious: Yes (Hospitalization)
  Sender: FDA-Public Use
  Company Number: 04-05-0667

PATIENT
  Age: 68 Year
  Sex: Female
  Weight: 52.1637 kg

DRUGS (10)
  1. CLOZAPINE [Suspect]
     Indication: DEMENTIA
     Dosage: 500 MG QAM ORAL
     Route: 048
     Dates: start: 20010501
  2. CLOZAPINE [Suspect]
     Indication: SCHIZOPHRENIA
     Dosage: 500 MG QAM ORAL
     Route: 048
     Dates: start: 20010501
  3. PLAVIX [Concomitant]
  4. ZANTAC [Concomitant]
  5. SYNTHROID [Concomitant]
  6. ALLEGRA [Concomitant]
  7. ASPIRIN [Concomitant]
  8. LANOXIN [Concomitant]
  9. METOPROLOL [Concomitant]
  10. NORVASC [Concomitant]

REACTIONS (2)
  - CEREBROVASCULAR ACCIDENT [None]
  - COMA [None]
